FAERS Safety Report 6543784-9 (Version None)
Quarter: 2010Q1

REPORT INFORMATION
  Report Type: 
  Country: None (occurrence: None)
  Receive Date: 20100120
  Receipt Date: 20090917
  Transmission Date: 20100710
  Serious: No
  Sender: FDA-Public Use
  Company Number: US-BRISTOL-MYERS SQUIBB COMPANY-14784060

PATIENT
  Age: 75 Year
  Sex: Female

DRUGS (3)
  1. ERBITUX [Suspect]
     Indication: LUNG NEOPLASM MALIGNANT
     Dosage: LOADING DOSE OF 400 MG AND THEN 250 MG WEEKLY.
  2. CISPLATIN [Suspect]
     Indication: LUNG NEOPLASM MALIGNANT
  3. NAVELBINE [Suspect]
     Indication: LUNG NEOPLASM MALIGNANT

REACTIONS (2)
  - CONJUNCTIVITIS [None]
  - RASH [None]
